FAERS Safety Report 18431247 (Version 1)
Quarter: 2020Q4

REPORT INFORMATION
  Report Type: Spontaneous
  Country: US (occurrence: US)
  Receive Date: 20201027
  Receipt Date: 20201027
  Transmission Date: 20210114
  Serious: No
  Sender: FDA-Public Use
  Company Number: None

PATIENT
  Sex: Female

DRUGS (2)
  1. BENADRYL [Suspect]
     Active Substance: DIPHENHYDRAMINE HYDROCHLORIDE
  2. TYSABRI [Suspect]
     Active Substance: NATALIZUMAB

REACTIONS (8)
  - Needle issue [None]
  - Palpitations [None]
  - Jaw disorder [None]
  - Chills [None]
  - Haemorrhage [None]
  - Respiratory rate increased [None]
  - Tremor [None]
  - Pain [None]
